FAERS Safety Report 6229967-6 (Version None)
Quarter: 2009Q2

REPORT INFORMATION
  Report Type: 
  Country: None (occurrence: None)
  Receive Date: 20090615
  Receipt Date: 20090526
  Transmission Date: 20091009
  Serious: No
  Sender: FDA-Public Use
  Company Number: US-EISAI INC.-E3810-02904-SPO-US

PATIENT
  Age: 47 Year
  Sex: Male

DRUGS (2)
  1. ACIPHEX [Suspect]
     Dosage: UNKNOWN
     Route: 048
  2. CITALOPRAM HYDROBROMIDE [Suspect]
     Indication: DEPRESSION
     Dosage: UNKNOWN
     Route: 065

REACTIONS (1)
  - NEUROENDOCRINE CARCINOMA [None]
